FAERS Safety Report 9298269 (Version 1)
Quarter: 2012Q4

REPORT INFORMATION
  Report Type: Spontaneous
  Country: FR (occurrence: None)
  Receive Date: 20121001
  Receipt Date: 20121001
  Transmission Date: 20130627
  Serious: Yes (Other)
  Sender: FDA-Public Use
  Company Number: JPI-P-003553

PATIENT
  Age: 36 Year
  Sex: Male

DRUGS (6)
  1. XYREM (500 MILLIGRAM/MILLILITERS, SOLUTION) (SODIUM OXYBATE) [Suspect]
     Indication: NARCOLEPSY
     Route: 048
     Dates: start: 20080205, end: 20080306
  2. XYREM (500 MILLIGRAM/MILLILITERS, SOLUTION) (SODIUM OXYBATE) [Suspect]
     Indication: NARCOLEPSY
     Route: 048
     Dates: start: 20080307
  3. XYREM (500 MILLIGRAM/MILLILITERS, SOLUTION) (SODIUM OXYBATE) [Suspect]
     Indication: NARCOLEPSY
     Route: 048
  4. MODAFINIL [Concomitant]
  5. MAZINDOL [Concomitant]
  6. CLOMIPRAMINE HYDROCHLORIDE [Concomitant]

REACTIONS (3)
  - Headache [None]
  - Laryngospasm [None]
  - Dyspnoea [None]
